FAERS Safety Report 16905845 (Version 1)
Quarter: 2019Q4

REPORT INFORMATION
  Report Type: Spontaneous
  Country: US (occurrence: US)
  Receive Date: 20191010
  Receipt Date: 20191010
  Transmission Date: 20200122
  Serious: No
  Sender: FDA-Public Use
  Company Number: US-TEVA-2019-US-1119702

PATIENT
  Sex: Female

DRUGS (1)
  1. OXYBUTYNIN. [Suspect]
     Active Substance: OXYBUTYNIN CHLORIDE
     Indication: POST PROCEDURAL URINE LEAK
     Dosage: 10 MILLIGRAM DAILY; 10MG TABLET BY MOUTH ONCE DAILY
     Route: 048
     Dates: start: 2019, end: 20191002

REACTIONS (1)
  - Drug ineffective [Unknown]
